FAERS Safety Report 23424282 (Version 1)
Quarter: 2024Q1

REPORT INFORMATION
  Report Type: Report from Study
  Country: CN (occurrence: CN)
  Receive Date: 20240120
  Receipt Date: 20240120
  Transmission Date: 20240409
  Serious: Yes (Hospitalization, Other)
  Sender: FDA-Public Use
  Company Number: CN-TEVA-VS-3147138

PATIENT
  Age: 58 Year
  Weight: 169 kg

DRUGS (5)
  1. BENDAMUSTINE [Suspect]
     Active Substance: BENDAMUSTINE
     Indication: Chronic lymphocytic leukaemia
     Route: 042
     Dates: start: 20230803, end: 20231226
  2. RITUXIMAB [Suspect]
     Active Substance: RITUXIMAB
     Indication: Chronic lymphocytic leukaemia
     Dosage: CYCLICAL
     Route: 042
     Dates: start: 20230803, end: 20230803
  3. RITUXIMAB [Suspect]
     Active Substance: RITUXIMAB
     Indication: Chronic lymphocytic leukaemia
     Dosage: CYCLICAL
     Route: 042
     Dates: start: 20230831, end: 20231123
  4. RITUXIMAB [Suspect]
     Active Substance: RITUXIMAB
     Indication: Chronic lymphocytic leukaemia
     Dosage: CYCLICAL
     Route: 042
     Dates: start: 20230831, end: 20231226
  5. RITUXIMAB [Suspect]
     Active Substance: RITUXIMAB
     Indication: Chronic lymphocytic leukaemia
     Dosage: CYCLICAL
     Route: 042
     Dates: start: 20230803, end: 20230803

REACTIONS (3)
  - Pneumonia [Unknown]
  - Neutrophil count decreased [Unknown]
  - Pyrexia [Unknown]

NARRATIVE: CASE EVENT DATE: 20231219
